FAERS Safety Report 4578765-8 (Version None)
Quarter: 2005Q1

REPORT INFORMATION
  Report Type: 
  Country: None (occurrence: None)
  Receive Date: 20050207
  Receipt Date: 20050207
  Transmission Date: 20050727
  Serious: No
  Sender: FDA-Public Use
  Company Number: None

PATIENT

DRUGS (1)
  1. CIPRO [Suspect]

REACTIONS (12)
  - ASTHENIA [None]
  - CHILLS [None]
  - DECREASED APPETITE [None]
  - DIARRHOEA [None]
  - DIZZINESS [None]
  - DYSSTASIA [None]
  - FEELING ABNORMAL [None]
  - HAEMATOCHEZIA [None]
  - HYPERHIDROSIS [None]
  - HYPERTONIC BLADDER [None]
  - NO REACTION ON PREVIOUS EXPOSURE TO DRUG [None]
  - TOOTH DISORDER [None]
